FAERS Safety Report 5742140-0 (Version None)
Quarter: 2008Q2

REPORT INFORMATION
  Report Type: 
  Country: None (occurrence: None)
  Receive Date: 20080515
  Receipt Date: 20080502
  Transmission Date: 20081010
  Serious: Yes (Other)
  Sender: FDA-Public Use
  Company Number: IMP_03480_2008

PATIENT
  Sex: Female
  Weight: 72.5755 kg

DRUGS (2)
  1. BUPROPION HCL [Suspect]
     Indication: SUICIDAL IDEATION
     Dosage: 150 MG BID ORAL
     Route: 048
     Dates: start: 20080116, end: 20080204
  2. CHANTIX [Suspect]
     Indication: SMOKING CESSATION THERAPY
     Dosage: DF
     Dates: start: 20071201, end: 20080201

REACTIONS (2)
  - FEELING GUILTY [None]
  - SUICIDAL IDEATION [None]
